FAERS Safety Report 18344169 (Version 1)
Quarter: 2020Q4

REPORT INFORMATION
  Report Type: Spontaneous
  Country: DE (occurrence: DE)
  Receive Date: 20201005
  Receipt Date: 20201005
  Transmission Date: 20210114
  Serious: Yes (Other)
  Sender: FDA-Public Use
  Company Number: DE-TEVA-2020-DE-1834690

PATIENT
  Sex: Female
  Weight: 136 kg

DRUGS (3)
  1. METOPROLOL. [Suspect]
     Active Substance: METOPROLOL
     Indication: HYPERTENSION
     Dosage: UNK, THERAPY END DATE : ASKU
     Route: 065
     Dates: start: 20180909
  2. CERAZETTE [DESOGESTREL] [Suspect]
     Active Substance: DESOGESTREL
     Indication: HORMONAL CONTRACEPTION
     Dosage: UNK
     Route: 065
     Dates: start: 2010, end: 2020
  3. CERAZETTE [DESOGESTREL] [Suspect]
     Active Substance: DESOGESTREL
     Dosage: UNK
     Route: 065
     Dates: start: 2000, end: 2010

REACTIONS (6)
  - Musculoskeletal stiffness [Unknown]
  - Asthenia [Unknown]
  - Swelling [Unknown]
  - Tension [Unknown]
  - Venous thrombosis [Unknown]
  - Weight abnormal [Unknown]

NARRATIVE: CASE EVENT DATE: 202005
